FAERS Safety Report 5070217-4 (Version None)
Quarter: 2006Q3

REPORT INFORMATION
  Report Type: 
  Country: None (occurrence: None)
  Receive Date: 20060731
  Receipt Date: 20060718
  Transmission Date: 20061208
  Serious: Yes (Death, Other)
  Sender: FDA-Public Use
  Company Number: 2006JP002290

PATIENT
  Age: 35 Year
  Sex: Female

DRUGS (3)
  1. PROGRAF [Suspect]
     Indication: BONE MARROW TRANSPLANT
     Dosage: 0.02 MG/KG, CONTINUOUS, IV DRIP
     Route: 041
  2. METHOTREXATE (METHOTREXATE SODIUM) INJECTION [Concomitant]
  3. FUNGUARD (MICAFUNGIN) INJECTION [Concomitant]

REACTIONS (7)
  - DIARRHOEA [None]
  - DRUG EFFECT DECREASED [None]
  - FATIGUE [None]
  - GRAFT VERSUS HOST DISEASE [None]
  - HYPERAESTHESIA [None]
  - NEURALGIA [None]
  - PNEUMONIA BACTERIAL [None]
